FAERS Safety Report 17483444 (Version 1)
Quarter: 2020Q1

REPORT INFORMATION
  Report Type: Spontaneous
  Country: RU (occurrence: RU)
  Receive Date: 20200302
  Receipt Date: 20200302
  Transmission Date: 20200409
  Serious: Yes (Other)
  Sender: FDA-Public Use
  Company Number: RU-TEVA-2020-RU-1194390

PATIENT
  Age: 15 Year
  Sex: Female

DRUGS (3)
  1. FINLEPSIN [Concomitant]
     Active Substance: CARBAMAZEPINE
     Dosage: INDICATION: ADMISSION 2001-2003
     Route: 048
  2. TOPSAVER [Suspect]
     Active Substance: TOPIRAMATE
     Indication: EPILEPSY
     Dosage: 175 MILLIGRAM DAILY; FROM 2016-2017
     Route: 048
  3. PHENOBARBITAL. [Concomitant]
     Active Substance: PHENOBARBITAL
     Dosage: INDICATION: ADMISSION 2001-2002
     Route: 048

REACTIONS (3)
  - Headache [Recovering/Resolving]
  - Drug ineffective [Unknown]
  - Sleep disorder [Recovering/Resolving]
